FAERS Safety Report 16322589 (Version 3)
Quarter: 2019Q2

REPORT INFORMATION
  Report Type: Report from Study
  Country: US (occurrence: US)
  Receive Date: 20190516
  Receipt Date: 20190618
  Transmission Date: 20190711
  Serious: Yes (Other)
  Sender: FDA-Public Use
  Company Number: US-GILEAD-2019-0406392

PATIENT
  Age: 0 Year
  Sex: Female
  Weight: 3.21 kg

DRUGS (2)
  1. ISENTRESS [Suspect]
     Active Substance: RALTEGRAVIR POTASSIUM
     Indication: HIV INFECTION
     Dosage: 2 DOSE FORMS DAILY
     Route: 064
     Dates: start: 20180917, end: 20190201
  2. EMTRICITABINE/TENOFOVIR ALAFENAMIDE [Suspect]
     Active Substance: EMTRICITABINE\TENOFOVIR
     Indication: HIV INFECTION
     Dosage: 1 DOSAGE FORM QD
     Route: 064
     Dates: start: 20180917, end: 20190201

REACTIONS (5)
  - Arthropathy [Recovered/Resolved]
  - Plagiocephaly [Recovered/Resolved]
  - Torticollis [Recovered/Resolved]
  - Foetal exposure during pregnancy [Recovered/Resolved]
  - Ear disorder [Recovered/Resolved]

NARRATIVE: CASE EVENT DATE: 20180917
